FAERS Safety Report 6034192-8 (Version None)
Quarter: 2009Q1

REPORT INFORMATION
  Report Type: 
  Country: None (occurrence: None)
  Receive Date: 20090112
  Receipt Date: 20090105
  Transmission Date: 20090719
  Serious: Yes (Hospitalization, Other)
  Sender: FDA-Public Use
  Company Number: GB-AMGEN-UK327185

PATIENT
  Sex: Female

DRUGS (5)
  1. ARANESP [Suspect]
     Indication: RENAL FAILURE CHRONIC
     Dates: start: 20060601, end: 20081201
  2. EPREX [Suspect]
     Dates: start: 20080207, end: 20080917
  3. ERYTHROPOIETIN HUMAN [Suspect]
  4. MYCOPHENOLIC ACID [Suspect]
     Dates: start: 20080919
  5. TACROLIMUS [Suspect]
     Dates: start: 20080919

REACTIONS (4)
  - APLASIA PURE RED CELL [None]
  - DRUG INEFFECTIVE [None]
  - DRUG SPECIFIC ANTIBODY ABSENT [None]
  - RENAL TRANSPLANT [None]
